FAERS Safety Report 19490565 (Version 1)
Quarter: 2021Q3

REPORT INFORMATION
  Report Type: Spontaneous
  Country: CN (occurrence: CN)
  Receive Date: 20210705
  Receipt Date: 20210705
  Transmission Date: 20211014
  Serious: Yes (Other)
  Sender: FDA-Public Use
  Company Number: CN-LUPIN PHARMACEUTICALS INC.-2021-10847

PATIENT
  Age: 57 Year
  Sex: Female

DRUGS (5)
  1. LOPINAVIR [Suspect]
     Active Substance: LOPINAVIR
     Indication: COVID-19
     Dosage: 400 MILLIGRAM, BID
     Route: 065
     Dates: start: 2020
  2. INTERFERON ALFA 2B [Suspect]
     Active Substance: INTERFERON ALFA-2B
     Indication: COVID-19
     Dosage: 5 MILLION INTERNATIONAL UNIT, BID
     Dates: start: 2020
  3. BUDESONIDE. [Suspect]
     Active Substance: BUDESONIDE
     Indication: COVID-19
     Dosage: 1 MILLIGRAM, BID (ATOMIZATION INHALATION)
     Dates: start: 2020
  4. ARBIDOL HYDROCHLORIDE [Suspect]
     Active Substance: UMIFENOVIR HYDROCHLORIDE
     Indication: COVID-19
     Dosage: 0.2 GRAM, TID (FORM: GRANULES)
     Route: 065
     Dates: start: 2020
  5. RIBAVIRIN. [Suspect]
     Active Substance: RIBAVIRIN
     Indication: COVID-19
     Dosage: 0.5 GRAM, BID
     Route: 065
     Dates: start: 2020

REACTIONS (1)
  - Off label use [Unknown]

NARRATIVE: CASE EVENT DATE: 2020
